FAERS Safety Report 6171088-5 (Version None)
Quarter: 2009Q2

REPORT INFORMATION
  Report Type: 
  Country: None (occurrence: None)
  Receive Date: 20090429
  Receipt Date: 20090424
  Transmission Date: 20091009
  Serious: Yes (Life-Threatening, Hospitalization)
  Sender: FDA-Public Use
  Company Number: PHHY2009CI15879

PATIENT
  Sex: Male
  Weight: 68 kg

DRUGS (3)
  1. COARTEM [Suspect]
     Indication: PYREXIA
     Dosage: 4 DF, BID
     Route: 048
  2. COARTEM [Suspect]
     Indication: MALARIA
  3. PARACETAMOL [Concomitant]
     Dosage: 2 DF, TID

REACTIONS (5)
  - CHROMATURIA [None]
  - DRUG TOXICITY [None]
  - HAEMOGLOBINURIA [None]
  - OVERDOSE [None]
  - PYREXIA [None]
